FAERS Safety Report 7291774-3 (Version None)
Quarter: 2011Q1

REPORT INFORMATION
  Report Type: 
  Country: None (occurrence: None)
  Receive Date: 20110214
  Receipt Date: 20110204
  Transmission Date: 20110831
  Serious: Yes (Death)
  Sender: FDA-Public Use
  Company Number: CZ-ABBOTT-11P-217-0699564-00

PATIENT
  Age: 59 Year
  Sex: Female

DRUGS (11)
  1. PREDNISONE [Concomitant]
     Indication: OSTEOPOROSIS PROPHYLAXIS
     Dates: start: 20100105
  2. ARTRILOM [Concomitant]
     Indication: PRODUCT USED FOR UNKNOWN INDICATION
     Dates: start: 20080423
  3. ARTRILOM [Concomitant]
     Dates: start: 20071204, end: 20080207
  4. AGEN [Concomitant]
     Indication: HYPERTENSION
     Dates: start: 20070101
  5. CALCICHEW [Concomitant]
     Indication: OSTEOPOROSIS PROPHYLAXIS
     Dates: start: 20070401
  6. EGILOK [Concomitant]
     Indication: HYPERTENSION
     Dates: start: 20070101
  7. HELICID [Concomitant]
     Indication: PROPHYLAXIS AGAINST GASTROINTESTINAL ULCER
     Dates: start: 20070319
  8. HUMIRA [Suspect]
     Indication: SPONDYLITIS
     Route: 058
     Dates: start: 20100915, end: 20110105
  9. LEXAURIN [Concomitant]
     Indication: DEPRESSED MOOD
     Dates: start: 20090101
  10. STILNOX [Concomitant]
     Indication: INSOMNIA
     Dates: start: 20090101
  11. PREDNISONE [Concomitant]
     Dates: start: 20070319, end: 20110104

REACTIONS (1)
  - PULMONARY EMBOLISM [None]
